FAERS Safety Report 8609051-4 (Version None)
Quarter: 2012Q3

REPORT INFORMATION
  Report Type: 
  Country: None (occurrence: None)
  Receive Date: 20120821
  Receipt Date: 19910325
  Transmission Date: 20120928
  Serious: Yes (Hospitalization)
  Sender: FDA-Public Use
  Company Number: BS-ROCHE-1100547

PATIENT
  Age: 69 Year
  Sex: Male
  Weight: 82.174 kg

DRUGS (15)
  1. LASIX [Concomitant]
     Route: 048
  2. VASOTEC [Concomitant]
  3. LANOXIN [Concomitant]
  4. LASIX [Concomitant]
  5. PERGOLIDE MESYLATE [Concomitant]
  6. GLYBURIDE [Concomitant]
  7. NITROGLYCERIN [Concomitant]
     Route: 042
  8. INOCOR [Concomitant]
  9. TRIHEMIC-600 [Concomitant]
  10. ACTIVASE [Suspect]
     Indication: ACUTE MYOCARDIAL INFARCTION
  11. LASIX [Concomitant]
     Route: 042
  12. INSULIN [Concomitant]
     Route: 058
  13. HEPARIN [Concomitant]
     Route: 058
  14. DIGOXIN [Concomitant]
  15. ISORDIL [Concomitant]

REACTIONS (5)
  - WEIGHT DECREASED [None]
  - HAEMATEMESIS [None]
  - OROPHARYNGEAL PAIN [None]
  - TRACHEAL STENOSIS [None]
  - LUNG INFILTRATION [None]
